FAERS Safety Report 21271522 (Version 1)
Quarter: 2022Q3

REPORT INFORMATION
  Report Type: Report from Study
  Country: FR (occurrence: FR)
  Receive Date: 20220830
  Receipt Date: 20220830
  Transmission Date: 20221026
  Serious: Yes (Hospitalization, Other)
  Sender: FDA-Public Use
  Company Number: FR-TAKEDA-2022TUS059671

PATIENT
  Age: 36 Year
  Sex: Female

DRUGS (12)
  1. ICATIBANT [Suspect]
     Active Substance: ICATIBANT ACETATE
     Indication: Hereditary angioedema
     Dosage: UNK
     Route: 065
     Dates: start: 20120128
  2. ICATIBANT [Suspect]
     Active Substance: ICATIBANT ACETATE
     Indication: Hereditary angioedema
     Dosage: UNK
     Route: 065
     Dates: start: 20120128
  3. ICATIBANT [Suspect]
     Active Substance: ICATIBANT ACETATE
     Dosage: UNK
     Route: 065
     Dates: start: 201707
  4. ICATIBANT [Suspect]
     Active Substance: ICATIBANT ACETATE
     Dosage: UNK
     Route: 065
     Dates: start: 201707
  5. ICATIBANT [Suspect]
     Active Substance: ICATIBANT ACETATE
     Dosage: 30 MILLIGRAM
     Route: 058
     Dates: start: 201710, end: 201710
  6. ICATIBANT [Suspect]
     Active Substance: ICATIBANT ACETATE
     Dosage: 30 MILLIGRAM
     Route: 058
     Dates: start: 201710, end: 201710
  7. BERINERT [Concomitant]
     Active Substance: HUMAN C1-ESTERASE INHIBITOR
     Indication: Cholecystectomy
     Dosage: 20 INTERNATIONAL UNIT/KILOGRAM
     Route: 042
     Dates: start: 201710, end: 201710
  8. TRANEXAMIC ACID [Concomitant]
     Active Substance: TRANEXAMIC ACID
     Indication: Intentional product misuse
     Dosage: 2 GRAM, QD
     Route: 048
     Dates: start: 20171012, end: 20171012
  9. NEFOPAM [Concomitant]
     Active Substance: NEFOPAM
     Indication: Cholecystitis acute
     Dosage: UNK
     Route: 030
     Dates: start: 20171013, end: 2017
  10. ACETAMINOPHEN [Concomitant]
     Active Substance: ACETAMINOPHEN
     Indication: Cholecystitis acute
     Dosage: 1 GRAM
     Route: 042
     Dates: start: 20171013, end: 201710
  11. METOCLOPRAMIDE [Concomitant]
     Active Substance: METOCLOPRAMIDE
     Indication: Cholecystitis acute
     Dosage: UNK
     Route: 042
     Dates: start: 20171013, end: 201710
  12. PHLOROGLUCINOL [Concomitant]
     Active Substance: PHLOROGLUCINOL
     Indication: Cholecystitis acute
     Dosage: UNK
     Route: 042
     Dates: start: 20171013, end: 201710

REACTIONS (2)
  - Pulmonary sarcoidosis [Not Recovered/Not Resolved]
  - Off label use [Recovered/Resolved]

NARRATIVE: CASE EVENT DATE: 20130716
